FAERS Safety Report 21822985 (Version 2)
Quarter: 2024Q1

REPORT INFORMATION
  Report Type: Spontaneous
  Country: US (occurrence: US)
  Receive Date: 20230105
  Receipt Date: 20240104
  Transmission Date: 20240409
  Serious: No
  Sender: FDA-Public Use
  Company Number: US-AMNEAL PHARMACEUTICALS-2022-AMRX-00720

PATIENT
  Age: 51 Year
  Sex: Female
  Weight: 90.6 kg

DRUGS (9)
  1. ACTIVELLA [Suspect]
     Active Substance: ESTRADIOL\NORETHINDRONE ACETATE
     Indication: Uterine leiomyoma
     Dosage: 1 DOSAGE FORM, 1 /DAY
     Route: 048
     Dates: start: 20181120, end: 20191114
  2. ACTIVELLA [Suspect]
     Active Substance: ESTRADIOL\NORETHINDRONE ACETATE
     Dosage: 1 DOSAGE FORM
     Route: 048
     Dates: start: 20191122, end: 20220128
  3. ELAGOLIX [Suspect]
     Active Substance: ELAGOLIX
     Indication: Uterine leiomyoma
     Dosage: 1 DOSAGE FORM, 1 /DAY PM DOSE
     Route: 048
     Dates: start: 20191122, end: 20220128
  4. PHENYLEPHRINE [Concomitant]
     Active Substance: PHENYLEPHRINE HYDROCHLORIDE
     Indication: Respiratory tract congestion
     Dosage: 1 DOSAGE FORM, AS REQUIRED
     Route: 048
     Dates: start: 20180706
  5. GUAIFENESIN [Concomitant]
     Active Substance: GUAIFENESIN
     Indication: Respiratory tract congestion
     Dosage: 1 DOSAGE FORM, AS REQUIRED
     Route: 048
     Dates: start: 20180706
  6. ACETAMINOPHEN [Concomitant]
     Active Substance: ACETAMINOPHEN
     Indication: Dysmenorrhoea
     Dosage: 200 MG,1 AS REQUIRED
     Route: 048
     Dates: start: 20000701
  7. ACETAMINOPHEN [Concomitant]
     Active Substance: ACETAMINOPHEN
     Indication: Headache
     Dosage: 565 MG,1 AS REQUIRED
     Route: 048
     Dates: start: 20000701
  8. FERROUS SULFATE [Concomitant]
     Active Substance: FERROUS SULFATE
     Indication: Anaemia
     Dosage: 3 DOSAGE FORM, 1 /DAY
     Route: 048
     Dates: start: 20181226
  9. DOCUSATE SODIUM [Concomitant]
     Active Substance: DOCUSATE SODIUM
     Indication: Constipation prophylaxis
     Dosage: 2 DOSAGE FORM, 1 /DAY
     Route: 048
     Dates: start: 20181226

REACTIONS (1)
  - Bone density decreased [Recovered/Resolved]

NARRATIVE: CASE EVENT DATE: 20210413
